FAERS Safety Report 23949008 (Version 1)
Quarter: 2024Q2

REPORT INFORMATION
  Report Type: Spontaneous
  Country: US (occurrence: US)
  Receive Date: 20240607
  Receipt Date: 20240607
  Transmission Date: 20240716
  Serious: No
  Sender: FDA-Public Use
  Company Number: US-TARO PHARMACEUTICALS USA INC.-2023TAR01258

PATIENT

DRUGS (1)
  1. IMIQUIMOD [Suspect]
     Active Substance: IMIQUIMOD
     Indication: Paget^s disease of the vulva
     Dosage: UNK,TWICE WEEKLY X 2 WEEKS,USED A FULL PACKET PER APPLICATION
     Route: 061
     Dates: start: 20231108, end: 20231119

REACTIONS (5)
  - Burning sensation [Recovered/Resolved]
  - Off label use [Unknown]
  - Influenza like illness [Recovered/Resolved]
  - Nausea [Recovered/Resolved]
  - Pruritus [Recovered/Resolved]
